FAERS Safety Report 6899681-2 (Version None)
Quarter: 2010Q3

REPORT INFORMATION
  Report Type: 
  Country: None (occurrence: None)
  Receive Date: 20100728
  Receipt Date: 20100728
  Transmission Date: 20110219
  Serious: Yes (Hospitalization)
  Sender: FDA-Public Use
  Company Number: None

PATIENT
  Sex: Male
  Weight: 93.3 kg

DRUGS (18)
  1. TEMODAR [Suspect]
     Indication: GLIOBLASTOMA MULTIFORME
     Dosage: 100MG/M2 DAILY ORAL
     Route: 048
     Dates: start: 20100309, end: 20100329
  2. TEMODAR [Suspect]
     Indication: NEOPLASM RECURRENCE
     Dosage: 100MG/M2 DAILY ORAL
     Route: 048
     Dates: start: 20100309, end: 20100329
  3. TEMODAR [Suspect]
     Indication: GLIOBLASTOMA MULTIFORME
     Dosage: 100MG/M2 DAILY ORAL
     Route: 048
     Dates: start: 20100406, end: 20100426
  4. TEMODAR [Suspect]
     Indication: NEOPLASM RECURRENCE
     Dosage: 100MG/M2 DAILY ORAL
     Route: 048
     Dates: start: 20100406, end: 20100426
  5. TEMODAR [Suspect]
     Indication: GLIOBLASTOMA MULTIFORME
     Dosage: 100MG/M2 DAILY ORAL
     Route: 048
     Dates: start: 20100512, end: 20100601
  6. TEMODAR [Suspect]
     Indication: NEOPLASM RECURRENCE
     Dosage: 100MG/M2 DAILY ORAL
     Route: 048
     Dates: start: 20100512, end: 20100601
  7. BACTRIM [Concomitant]
  8. DEXAMETHASONE [Concomitant]
  9. ZOFRAN [Concomitant]
  10. TYLENOL [Concomitant]
  11. PROPRANOLOL [Concomitant]
  12. OMEPRAZOLE [Concomitant]
  13. RITALIN [Concomitant]
  14. NYSTATIN [Concomitant]
  15. NORTRIPTYLINE [Concomitant]
  16. KEPPRA [Concomitant]
  17. COLACE [Concomitant]
  18. ATIVAN [Concomitant]

REACTIONS (17)
  - ABDOMINAL DISCOMFORT [None]
  - ABDOMINAL DISTENSION [None]
  - CHEST PAIN [None]
  - CHOLELITHIASIS [None]
  - DIARRHOEA [None]
  - DYSPNOEA [None]
  - GASTROINTESTINAL DISORDER [None]
  - HEADACHE [None]
  - HEPATIC STEATOSIS [None]
  - HYPOKALAEMIA [None]
  - INGUINAL HERNIA [None]
  - LUNG NEOPLASM [None]
  - NAUSEA [None]
  - PAIN [None]
  - PULMONARY EMBOLISM [None]
  - TREATMENT NONCOMPLIANCE [None]
  - VOMITING [None]
